FAERS Safety Report 16767155 (Version 5)
Quarter: 2020Q1

REPORT INFORMATION
  Report Type: Spontaneous
  Country: US (occurrence: US)
  Receive Date: 20190903
  Receipt Date: 20200218
  Transmission Date: 20200409
  Serious: Yes (Other)
  Sender: FDA-Public Use
  Company Number: US-PFIZER INC-2019375552

PATIENT
  Age: 56 Year
  Sex: Female

DRUGS (3)
  1. SUTENT [Suspect]
     Active Substance: SUNITINIB MALATE
     Indication: RENAL CANCER
     Dosage: 50 MG, CYCLIC (EVERY DAY FOR 4 WEEKS, THEN OFF 2 WEEKS)
     Route: 048
     Dates: start: 20190813
  2. SUTENT [Suspect]
     Active Substance: SUNITINIB MALATE
     Dosage: 37.5 MG, CYCLIC (14 DAYS AND OFF ONE WEEK, THEN REPEAT)
     Route: 048
     Dates: start: 20190813
  3. SUTENT [Suspect]
     Active Substance: SUNITINIB MALATE
     Dosage: 50 MG DAILY FOR 2 WEEKS ON, 1 WEEK OFF
     Route: 048

REACTIONS (16)
  - Blood pressure decreased [Unknown]
  - Fatigue [Unknown]
  - Arthralgia [Unknown]
  - Burning sensation [Unknown]
  - Pain of skin [Unknown]
  - Blister [Unknown]
  - Head injury [Unknown]
  - Asthenia [Unknown]
  - Loss of consciousness [Unknown]
  - Malaise [Unknown]
  - Fall [Unknown]
  - Vomiting [Unknown]
  - Back pain [Unknown]
  - Dizziness [Unknown]
  - Nausea [Unknown]
  - Stomatitis [Unknown]

NARRATIVE: CASE EVENT DATE: 2019
